FAERS Safety Report 19299861 (Version 1)
Quarter: 2021Q2

REPORT INFORMATION
  Report Type: Spontaneous
  Country: US (occurrence: US)
  Receive Date: 20210524
  Receipt Date: 20210524
  Transmission Date: 20210717
  Serious: No
  Sender: FDA-Public Use
  Company Number: None

PATIENT
  Age: 53 Year
  Weight: 58.5 kg

DRUGS (1)
  1. NP THYROID [Suspect]
     Active Substance: LEVOTHYROXINE\LIOTHYRONINE
     Indication: HYPOTHYROIDISM
     Dosage: ?          QUANTITY:90 TABLET(S);?
     Route: 048
     Dates: start: 20210519, end: 20210521

REACTIONS (8)
  - Tinnitus [None]
  - Weight increased [None]
  - Dyspnoea [None]
  - Goitre [None]
  - Fatigue [None]
  - Body temperature decreased [None]
  - Depressed level of consciousness [None]
  - Migraine [None]

NARRATIVE: CASE EVENT DATE: 20210519
